FAERS Safety Report 15289962 (Version 1)
Quarter: 2018Q3

REPORT INFORMATION
  Report Type: Spontaneous
  Country: US (occurrence: US)
  Receive Date: 20180804
  Receipt Date: 20180804
  Transmission Date: 20181010
  Serious: Yes (Other)
  Sender: FDA-Public Use
  Company Number: None

PATIENT
  Age: 18 Year
  Sex: Male
  Weight: 108 kg

DRUGS (2)
  1. CIPROFLOXACIN HCI 500MG [Suspect]
     Active Substance: CIPROFLOXACIN HYDROCHLORIDE
     Indication: TESTICULAR PAIN
     Dosage: ?          QUANTITY:20 TABLET(S);?
     Route: 048
     Dates: start: 20180524, end: 20180525
  2. GABAPENTIN. [Concomitant]
     Active Substance: GABAPENTIN

REACTIONS (13)
  - Pruritus [None]
  - Insomnia [None]
  - Arthralgia [None]
  - Oropharyngeal pain [None]
  - Discomfort [None]
  - Head discomfort [None]
  - Pharyngeal oedema [None]
  - Malaise [None]
  - Paraesthesia [None]
  - Hypoaesthesia [None]
  - Skin burning sensation [None]
  - Pain in extremity [None]
  - Confusional state [None]

NARRATIVE: CASE EVENT DATE: 20180525
